FAERS Safety Report 12228584 (Version 1)
Quarter: 2016Q2

REPORT INFORMATION
  Report Type: Spontaneous
  Country: DE (occurrence: DE)
  Receive Date: 20160401
  Receipt Date: 20160401
  Transmission Date: 20160815
  Serious: Yes (Other)
  Sender: FDA-Public Use
  Company Number: DE-SUN PHARMACEUTICAL INDUSTRIES LTD-2016RR-114152

PATIENT
  Age: 1 Day
  Sex: Male

DRUGS (8)
  1. FLUOMIZIN [Concomitant]
     Indication: BACTERIAL VAGINOSIS
     Dosage: 10 MG, DAILY, FROM 26-27 GESTATIONAL WEEK
     Route: 064
  2. QUENSYL [Suspect]
     Active Substance: HYDROXYCHLOROQUINE
     Indication: SYSTEMIC LUPUS ERYTHEMATOSUS
     Dosage: 200 MG, DAILY, FROM 15-41.1 GESTATIONAL WEEK
     Route: 064
  3. CITALOPRAM [Suspect]
     Active Substance: CITALOPRAM HYDROBROMIDE
     Indication: ANXIETY DISORDER
     Dosage: 40 MG, DAILY, FROM 0-41.1 GESTATIONAL WEEK
     Route: 064
     Dates: start: 20150214, end: 20151129
  4. CLEXANE 40 [Concomitant]
     Indication: FACTOR V DEFICIENCY
     Dosage: 40 MG, DAILY, FROM 4-41.1 GESTATIONAL WEEK
     Route: 064
  5. BIOFANAL [Concomitant]
     Indication: VULVOVAGINAL MYCOTIC INFECTION
     Dosage: FROM 37-38 GESTATIONAL WEEK
     Route: 064
  6. FOLIO [Concomitant]
     Active Substance: FOLIC ACID
     Indication: PROPHYLAXIS OF NEURAL TUBE DEFECT
     Dosage: 0.4 MG, DAILY, FROM 0-14.4 GESTATIONAL WEEK
     Route: 064
     Dates: start: 20150214, end: 20150527
  7. L-THYROXIN [Concomitant]
     Active Substance: LEVOTHYROXINE SODIUM
     Indication: HYPOTHYROIDISM
     Dosage: 75 ?G, DAILY, FROM 0-41.1 GESTATIONAL WEEK
     Route: 064
     Dates: start: 20150214, end: 20151129
  8. AMOXIHEXAL [Concomitant]
     Active Substance: AMOXICILLIN
     Indication: SINUSITIS
     Dosage: 1000 MG, TID, FROM 37-39 GESTATIONAL WEEK
     Route: 064

REACTIONS (1)
  - Small for dates baby [Unknown]

NARRATIVE: CASE EVENT DATE: 20151129
